FAERS Safety Report 5756989-1 (Version None)
Quarter: 2008Q2

REPORT INFORMATION
  Report Type: 
  Country: None (occurrence: None)
  Receive Date: 20080603
  Receipt Date: 20080522
  Transmission Date: 20081010
  Serious: Yes (Death)
  Sender: FDA-Public Use
  Company Number: FR-ELI_LILLY_AND_COMPANY-FR200805004419

PATIENT
  Sex: Male

DRUGS (3)
  1. GEMZAR [Suspect]
     Indication: LUNG CANCER METASTATIC
     Dosage: 1250 MG/KG,21 DAY CYCLE
     Route: 042
     Dates: start: 20071123, end: 20080201
  2. CISPLATIN [Concomitant]
     Indication: LUNG NEOPLASM MALIGNANT
     Dosage: 80 MG/KG, UNKNOWN
     Route: 042
     Dates: start: 20071123, end: 20080201
  3. AVASTIN [Concomitant]
     Indication: LUNG CANCER METASTATIC
     Dosage: 7.5 MG/KG, UNKNOWN
     Route: 042
     Dates: start: 20080220, end: 20080225

REACTIONS (1)
  - DEATH [None]
